FAERS Safety Report 4808719-5 (Version None)
Quarter: 2005Q4

REPORT INFORMATION
  Report Type: 
  Country: None (occurrence: None)
  Receive Date: 20051021
  Receipt Date: 20031003
  Transmission Date: 20060501
  Serious: Yes (Hospitalization)
  Sender: FDA-Public Use
  Company Number: EWC031036496

PATIENT
  Age: 60 Year
  Sex: Female

DRUGS (6)
  1. OLANZAPINE [Suspect]
     Indication: BORDERLINE PERSONALITY DISORDER
     Dosage: 20 MG/DAY
     Dates: start: 20030108, end: 20030723
  2. OLANZAPINE [Suspect]
     Indication: PSYCHOTIC DISORDER
     Dosage: 20 MG/DAY
     Dates: start: 20030108, end: 20030723
  3. LORAZEPAM [Concomitant]
  4. CITALOPRAM HYDROBROMIDE [Concomitant]
  5. CLONAZEPAM [Concomitant]
  6. TEGRETOL [Concomitant]

REACTIONS (13)
  - ANAEMIA [None]
  - ANISOCYTOSIS [None]
  - AUTOIMMUNE DISORDER [None]
  - HAEMOLYSIS [None]
  - HAEMORRHAGE [None]
  - MACROCYTOSIS [None]
  - MEGAKARYOCYTES DECREASED [None]
  - NEUTROPENIA [None]
  - PAROXYSMAL NOCTURNAL HAEMOGLOBINURIA [None]
  - POIKILOCYTOSIS [None]
  - RED BLOOD CELL SEDIMENTATION RATE INCREASED [None]
  - THROMBOCYTOPENIA [None]
  - WHITE BLOOD CELL COUNT DECREASED [None]
